FAERS Safety Report 5410954-2 (Version None)
Quarter: 2007Q3

REPORT INFORMATION
  Report Type: 
  Country: None (occurrence: None)
  Receive Date: 20070809
  Receipt Date: 20070809
  Transmission Date: 20080115
  Serious: Yes (Hospitalization, Other)
  Sender: FDA-Public Use
  Company Number: None

PATIENT
  Sex: Male
  Weight: 81.6475 kg

DRUGS (3)
  1. PERCODAN [Suspect]
     Indication: COLON CANCER
     Dosage: ONE  PO Q4
  2. PERCODAN [Suspect]
     Indication: LUNG NEOPLASM
     Dosage: ONE  PO Q4
  3. PERCODAN [Suspect]
     Indication: PAIN
     Dosage: ONE  PO Q4

REACTIONS (1)
  - PHARMACEUTICAL PRODUCT COMPLAINT [None]
